FAERS Safety Report 5579828-0 (Version None)
Quarter: 2008Q1

REPORT INFORMATION
  Report Type: 
  Country: None (occurrence: None)
  Receive Date: 20080102
  Receipt Date: 20071221
  Transmission Date: 20080703
  Serious: Yes (Disabling)
  Sender: FDA-Public Use
  Company Number: JP-PFIZER INC-2007106682

PATIENT
  Sex: Male
  Weight: 64 kg

DRUGS (2)
  1. ZOLOFT [Suspect]
     Indication: DEPRESSION
     Dosage: DAILY DOSE:25MG
     Route: 048
  2. LITHIUM CARBONATE [Suspect]
     Indication: DEPRESSION
     Dosage: DAILY DOSE:200MG
     Route: 048

REACTIONS (1)
  - PAROTITIS [None]
